FAERS Safety Report 4963440-8 (Version None)
Quarter: 2006Q2

REPORT INFORMATION
  Report Type: 
  Country: None (occurrence: None)
  Receive Date: 20060405
  Receipt Date: 20060303
  Transmission Date: 20061013
  Serious: Yes (Hospitalization)
  Sender: FDA-Public Use
  Company Number: PHHO2006JP03904

PATIENT
  Age: 77 Year
  Sex: Male

DRUGS (7)
  1. DIOVAN [Suspect]
     Indication: HYPERTENSION
     Dosage: 80 MG, QD
     Route: 048
     Dates: start: 20030221, end: 20030928
  2. DIOVAN [Suspect]
     Dosage: 120 MG, QD
     Route: 048
     Dates: start: 20030929, end: 20050601
  3. DIOVAN [Suspect]
     Dosage: 160 MG, QD
     Route: 048
     Dates: start: 20050602, end: 20050713
  4. CEROCRAL [Concomitant]
     Indication: CEREBRAL INFARCTION
  5. CEREKINON [Concomitant]
     Indication: GASTRITIS
  6. PANALDINE [Concomitant]
     Indication: CEREBRAL INFARCTION
  7. NORVASC [Concomitant]
     Indication: HYPERTENSION

REACTIONS (1)
  - CEREBRAL HAEMORRHAGE [None]
